FAERS Safety Report 7798032-9 (Version None)
Quarter: 2011Q4

REPORT INFORMATION
  Report Type: 
  Country: None (occurrence: None)
  Receive Date: 20111005
  Receipt Date: 20110923
  Transmission Date: 20120403
  Serious: Yes (Death, Hospitalization, Other)
  Sender: FDA-Public Use
  Company Number: US-ELI_LILLY_AND_COMPANY-US201010000096

PATIENT
  Sex: Male
  Weight: 47.166 kg

DRUGS (8)
  1. FORTEO [Suspect]
     Dosage: 20 UG, QD
  2. FORTEO [Suspect]
     Dosage: 20 UG, QD
     Route: 065
     Dates: end: 20110801
  3. FORTEO [Suspect]
     Dosage: 20 UG, QD
     Dates: end: 20110715
  4. DIOVAN [Concomitant]
  5. TOPROL-XL [Concomitant]
  6. PROTONIX [Concomitant]
  7. LORAZEPAM [Concomitant]
  8. FORTEO [Suspect]
     Indication: OSTEOPOROSIS
     Dosage: 20 UG, DAILY (1/D)
     Dates: start: 20100701

REACTIONS (9)
  - BLOOD PRODUCT TRANSFUSION [None]
  - ACUTE MYOCARDIAL INFARCTION [None]
  - CHRONIC OBSTRUCTIVE PULMONARY DISEASE [None]
  - BLOOD SODIUM DECREASED [None]
  - GENERAL PHYSICAL HEALTH DETERIORATION [None]
  - PNEUMONIA [None]
  - GASTROINTESTINAL TUBE INSERTION [None]
  - INJECTION SITE PAIN [None]
  - WEIGHT DECREASED [None]
